FAERS Safety Report 12491791 (Version 2)
Quarter: 2016Q2

REPORT INFORMATION
  Report Type: Spontaneous
  Country: JP (occurrence: JP)
  Receive Date: 20160623
  Receipt Date: 20160630
  Transmission Date: 20160815
  Serious: Yes (Hospitalization, Other)
  Sender: FDA-Public Use
  Company Number: JP-AMGEN-JPNSP2016079975

PATIENT
  Age: 60 Year
  Sex: Female

DRUGS (5)
  1. CICLOSPORIN A [Concomitant]
     Active Substance: CYCLOSPORINE
  2. NSAID-K [Suspect]
     Active Substance: KETOROLAC TROMETHAMINE
     Indication: NASOPHARYNGITIS
     Dosage: UNK
     Route: 065
  3. HORMON-F [Suspect]
     Active Substance: ESTRADIOL BENZOATE
     Indication: BREAST CANCER RECURRENT
     Dosage: UNK
     Route: 065
  4. COLD [Suspect]
     Active Substance: ACETAMINOPHEN\CHLORPHENIRAMINE MALEATE\DEXTROMETHORPHAN HYDROBROMIDE\PHENYLEPHRINE HYDROCHLORIDE
     Indication: NASOPHARYNGITIS
     Dosage: UNK
     Route: 065
  5. RANMARK [Suspect]
     Active Substance: DENOSUMAB
     Indication: BREAST CANCER RECURRENT
     Dosage: UNK
     Route: 065

REACTIONS (2)
  - Tubulointerstitial nephritis [Unknown]
  - Nephrotic syndrome [Unknown]
